FAERS Safety Report 19287204 (Version 1)
Quarter: 2021Q2

REPORT INFORMATION
  Report Type: Spontaneous
  Country: US (occurrence: US)
  Receive Date: 20210521
  Receipt Date: 20210521
  Transmission Date: 20210717
  Serious: No
  Sender: FDA-Public Use
  Company Number: US-IGSA-BIG0012741

PATIENT
  Sex: Female
  Weight: 55.8 kg

DRUGS (3)
  1. MULTIPLE VITAMIN [Concomitant]
     Active Substance: VITAMINS
     Dosage: UNK UNK, QD
     Route: 048
  2. HYPERRHO S/D [Suspect]
     Active Substance: HUMAN RHO(D) IMMUNE GLOBULIN
     Indication: ABORTION SPONTANEOUS
  3. HYPERRHO S/D [Suspect]
     Active Substance: HUMAN RHO(D) IMMUNE GLOBULIN
     Indication: RHESUS ANTIGEN NEGATIVE
     Dosage: 300 MICROGRAM, SINGLE
     Route: 030
     Dates: start: 20190528, end: 20190528

REACTIONS (1)
  - DNA antibody [Unknown]
